FAERS Safety Report 17828929 (Version 1)
Quarter: 2020Q2

REPORT INFORMATION
  Report Type: Spontaneous
  Country: CA (occurrence: CA)
  Receive Date: 20200527
  Receipt Date: 20200527
  Transmission Date: 20200714
  Serious: Yes (Other)
  Sender: FDA-Public Use
  Company Number: CA-ROCHE-2604080

PATIENT
  Age: 52 Year
  Sex: Female

DRUGS (3)
  1. AMOXICILLIN TRIHYDRATE;CLAVULANATE POTASSIUM [Suspect]
     Active Substance: AMOXICILLIN\CLAVULANATE POTASSIUM
     Indication: PNEUMONIA
     Route: 065
  2. AMOXICILLIN TRIHYDRATE;CLAVULANATE POTASSIUM [Suspect]
     Active Substance: AMOXICILLIN\CLAVULANATE POTASSIUM
     Indication: LOWER RESPIRATORY TRACT INFECTION
  3. OCRELIZUMAB. [Suspect]
     Active Substance: OCRELIZUMAB
     Indication: PRIMARY PROGRESSIVE MULTIPLE SCLEROSIS
     Route: 042

REACTIONS (6)
  - Pain [Recovered/Resolved]
  - Vulvovaginal mycotic infection [Recovered/Resolved]
  - Contusion [Recovered/Resolved]
  - Fall [Unknown]
  - Urinary tract infection [Recovered/Resolved]
  - Euphoric mood [Recovered/Resolved]
